FAERS Safety Report 6398282-2 (Version None)
Quarter: 2009Q4

REPORT INFORMATION
  Report Type: 
  Country: None (occurrence: None)
  Receive Date: 20091007
  Receipt Date: 20090922
  Transmission Date: 20100525
  Serious: Yes (Death, Life-Threatening, Hospitalization)
  Sender: FDA-Public Use
  Company Number: 2009002615

PATIENT
  Age: 61 Year
  Sex: Male

DRUGS (15)
  1. ERLOTINIB HYDROCHLORIDE [Suspect]
     Indication: NON-SMALL CELL LUNG CANCER
     Dosage: 150 MG, QD, ORAL
     Route: 048
     Dates: start: 20090728, end: 20090731
  2. RABEPRAZOLE SODIUM [Concomitant]
  3. CYTOTEC [Concomitant]
  4. LOXONIN (LOXOPROFEN SODIUM) [Concomitant]
  5. ISOSORBIDE (ISOSORBIDE) [Concomitant]
  6. NOVAMIN (PROCHLORPERAZINE) [Concomitant]
  7. PANTOSIN (PANTETHINE) [Concomitant]
  8. OPSO [Concomitant]
  9. GLYCEOL (GLYCEOL) [Concomitant]
  10. DECADRON [Concomitant]
  11. MAGLAX [Concomitant]
  12. SERENACE (HALOPERIDOL) [Concomitant]
  13. DUROTEP [Concomitant]
  14. LORAZEPAM [Concomitant]
  15. SILECE (FLUNITRAZEPAM) [Concomitant]

REACTIONS (19)
  - ACTIVITIES OF DAILY LIVING IMPAIRED [None]
  - ALANINE AMINOTRANSFERASE INCREASED [None]
  - ASPARTATE AMINOTRANSFERASE INCREASED [None]
  - BLOOD LACTATE DEHYDROGENASE INCREASED [None]
  - DECREASED ACTIVITY [None]
  - DECREASED APPETITE [None]
  - GENERAL PHYSICAL CONDITION ABNORMAL [None]
  - HAEMOGLOBIN DECREASED [None]
  - HYPOXIA [None]
  - MALIGNANT NEOPLASM PROGRESSION [None]
  - METASTASES TO BONE [None]
  - METASTASES TO CENTRAL NERVOUS SYSTEM [None]
  - METASTASES TO LIVER [None]
  - METASTASES TO MENINGES [None]
  - NON-SMALL CELL LUNG CANCER [None]
  - PLATELET COUNT DECREASED [None]
  - PNEUMONIA ASPIRATION [None]
  - PYREXIA [None]
  - SOMNOLENCE [None]
